FAERS Safety Report 14879035 (Version 1)
Quarter: 2018Q2

REPORT INFORMATION
  Report Type: Spontaneous
  Country: US (occurrence: US)
  Receive Date: 20180511
  Receipt Date: 20180511
  Transmission Date: 20180711
  Serious: No
  Sender: FDA-Public Use
  Company Number: US-SA-2017SA076898

PATIENT
  Sex: Male

DRUGS (6)
  1. SOLOSTAR [Concomitant]
     Active Substance: DEVICE
  2. PREDNISONE. [Concomitant]
     Active Substance: PREDNISONE
  3. TOUJEO [Concomitant]
     Active Substance: INSULIN GLARGINE
  4. SOLOSTAR [Concomitant]
     Active Substance: DEVICE
  5. VICTOZA [Concomitant]
     Active Substance: LIRAGLUTIDE
  6. APIDRA SOLOSTAR [Suspect]
     Active Substance: INSULIN GLULISINE
     Dosage: DOSE:90-120 UNITS
     Route: 065

REACTIONS (1)
  - Injury [Unknown]
